FAERS Safety Report 6808454-8 (Version None)
Quarter: 2010Q2

REPORT INFORMATION
  Report Type: 
  Country: None (occurrence: None)
  Receive Date: 20100629
  Receipt Date: 20090608
  Transmission Date: 20101027
  Serious: No
  Sender: FDA-Public Use
  Company Number: US-PFIZER INC-2009224169

PATIENT
  Age: 56 Year
  Sex: Male
  Weight: 109 kg

DRUGS (3)
  1. XANAX [Suspect]
     Indication: ANXIETY
     Dosage: 1 CAPLET 2-3 TIMES A DAY
     Dates: start: 20070101
  2. SIMPLY SLEEP [Interacting]
     Indication: INSOMNIA
     Dosage: 50 MG, 1X/DAY
     Route: 048
     Dates: start: 20090201, end: 20090408
  3. LEXAPRO [Interacting]
     Indication: ANXIETY
     Dosage: 10 MG, 1X/DAY
     Dates: start: 20050101

REACTIONS (2)
  - DRUG INTERACTION [None]
  - NIGHT SWEATS [None]
